FAERS Safety Report 7237176-7 (Version None)
Quarter: 2011Q1

REPORT INFORMATION
  Report Type: 
  Country: None (occurrence: None)
  Receive Date: 20110111
  Receipt Date: 20101227
  Transmission Date: 20110831
  Serious: Yes (Hospitalization)
  Sender: FDA-Public Use
  Company Number: 2010005647

PATIENT
  Age: 74 Year
  Sex: Female
  Weight: 26 kg

DRUGS (12)
  1. LASIX [Concomitant]
  2. LEVOTHYROXINE SODIUM [Concomitant]
  3. METHYCOBAL (MECOBALAMIN) [Concomitant]
  4. RINDERON (BETAMETHASONE) [Concomitant]
  5. GASMOTIN (MOSAPRIDE CITRATE) [Concomitant]
  6. LAC - B (LACTOBACILLUS BIFIDUS, LYOPHILIZED) [Concomitant]
  7. FERROMIA (FERROUS CITRATE) [Concomitant]
  8. BIOFERMIN (BIOFERMIN) [Concomitant]
  9. SLOW-K [Concomitant]
  10. RABEPRAZOLE SODIUM [Concomitant]
  11. POLYCARBOPHIL CALCIUM( POLYCARBOPHIL CALCIUM) [Concomitant]
  12. ERLOTINIB (ERLOTINIB) (TABLET) (ERLOTINIB) [Suspect]
     Indication: LUNG ADENOCARCINOMA
     Dosage: (150 MG,1 IN 1 D),ORAL
     Route: 048
     Dates: start: 20090319, end: 20090807

REACTIONS (7)
  - NEOPLASM MALIGNANT [None]
  - LUNG ADENOCARCINOMA [None]
  - CONDITION AGGRAVATED [None]
  - DIARRHOEA [None]
  - ANAEMIA [None]
  - RASH [None]
  - ERYTHEMA [None]
